FAERS Safety Report 7006253-8 (Version None)
Quarter: 2010Q3

REPORT INFORMATION
  Report Type: 
  Country: None (occurrence: None)
  Receive Date: 20100921
  Receipt Date: 20100914
  Transmission Date: 20110219
  Serious: No
  Sender: FDA-Public Use
  Company Number: US-PFIZER INC-2010104647

PATIENT
  Sex: Female
  Weight: 86.168 kg

DRUGS (2)
  1. CADUET [Suspect]
     Indication: HYPERTENSION
     Dosage: AMLODIPINE 5 MG/ATORVASTATIN 10 MG
     Route: 048
     Dates: start: 20100809
  2. CADUET [Suspect]
     Indication: BLOOD CHOLESTEROL INCREASED

REACTIONS (7)
  - DIZZINESS [None]
  - DYSURIA [None]
  - FACIAL PAIN [None]
  - HEAD DISCOMFORT [None]
  - LIMB DISCOMFORT [None]
  - MALAISE [None]
  - PARAESTHESIA ORAL [None]
